FAERS Safety Report 11008864 (Version 1)
Quarter: 2015Q2

REPORT INFORMATION
  Report Type: Other
  Country: GB (occurrence: GB)
  Receive Date: 20150410
  Receipt Date: 20150410
  Transmission Date: 20150821
  Serious: Yes (Hospitalization)
  Sender: FDA-Public Use
  Company Number: GB-MYLANLABS-2015M1010481

PATIENT

DRUGS (6)
  1. RANITIDINE [Suspect]
     Active Substance: RANITIDINE\RANITIDINE HYDROCHLORIDE
     Dosage: 150 MG, QD (AT NIGHT (ON))
     Route: 048
     Dates: start: 2011
  2. ASPIRIN. [Concomitant]
     Active Substance: ASPIRIN
     Dosage: 75 MG, QD (EVERY MORNING (OM))
     Route: 048
  3. BISOPROLOL [Concomitant]
     Active Substance: BISOPROLOL
     Dosage: 2.5 MG, QD (EVERY MORNING (OM))
     Route: 048
  4. RAMIPRIL. [Concomitant]
     Active Substance: RAMIPRIL
     Dosage: 2.5 MG, QD (EVERY NIGHT (ON))
  5. ATORVASTATIN [Suspect]
     Active Substance: ATORVASTATIN
     Dosage: 80 MG, QD (EVERY NIGHT (ON))
     Route: 048
     Dates: start: 201310
  6. GLYCERYL TRINITRATE [Concomitant]
     Active Substance: NITROGLYCERIN
     Dosage: 1 DF, UNK (1-2 PUFFS = 1DF AS NECESSARY (PRN). 400MICROGRAMS/DOSE)
     Route: 060
     Dates: end: 201304

REACTIONS (4)
  - Hepatitis [Unknown]
  - Faeces discoloured [Unknown]
  - Malaise [Unknown]
  - Jaundice [Unknown]
